FAERS Safety Report 23663197 (Version 1)
Quarter: 2024Q1

REPORT INFORMATION
  Report Type: Spontaneous
  Country: ZA (occurrence: None)
  Receive Date: 20240322
  Receipt Date: 20240322
  Transmission Date: 20240410
  Serious: Yes (Death)
  Sender: FDA-Public Use
  Company Number: 2024A068660

PATIENT
  Age: 79 Year
  Sex: Male

DRUGS (7)
  1. DAPAGLIFLOZIN PROPANEDIOL [Suspect]
     Active Substance: DAPAGLIFLOZIN PROPANEDIOL
     Indication: Diabetes mellitus
     Dosage: 10.0MG UNKNOWN
     Route: 048
  2. ZIMBUS BREEZ HALER [Concomitant]
     Indication: Bronchitis
     Dosage: 150 UG
     Route: 055
  3. CYFIL [Concomitant]
     Indication: Erectile dysfunction
     Dosage: 5 MG
     Route: 058
  4. ASTHAVENT ECOHALER [Concomitant]
     Indication: Asthma
     Dosage: 100 UG, 200 DOSE
     Route: 055
  5. ALLECET [Concomitant]
     Indication: Hypersensitivity
     Dosage: 10MG
     Route: 048
  6. PERINDOPRIL [Concomitant]
     Active Substance: PERINDOPRIL
     Indication: Hypertension
     Dosage: 5 MG
     Route: 048
  7. RIVAROXABAN [Concomitant]
     Active Substance: RIVAROXABAN
     Indication: Anticoagulant therapy
     Dosage: 20 MG
     Route: 048

REACTIONS (1)
  - Death [Fatal]

NARRATIVE: CASE EVENT DATE: 20240227
